FAERS Safety Report 5362841-6 (Version None)
Quarter: 2007Q2

REPORT INFORMATION
  Report Type: 
  Country: None (occurrence: None)
  Receive Date: 20070615
  Receipt Date: 20070601
  Transmission Date: 20071010
  Serious: Yes (Death, Other)
  Sender: FDA-Public Use
  Company Number: POMP-11080

PATIENT
  Age: 48 Week
  Sex: Male

DRUGS (3)
  1. MYOZYME [Suspect]
     Indication: GLYCOGEN STORAGE DISEASE TYPE II
     Dosage: 10 MG/KG QWK IV
     Route: 042
     Dates: start: 20070219, end: 20070524
  2. MYOZYME [Suspect]
     Indication: GLYCOGEN STORAGE DISEASE TYPE II
     Dosage: 20 MG/KG Q2WKS IV
     Route: 042
     Dates: start: 20061107, end: 20070117
  3. DIGOXIN [Concomitant]

REACTIONS (7)
  - BASE EXCESS INCREASED [None]
  - BLOOD BICARBONATE INCREASED [None]
  - MUSCLE DISORDER [None]
  - OXYGEN SATURATION DECREASED [None]
  - PYREXIA [None]
  - RESPIRATORY FAILURE [None]
  - WHEEZING [None]
